FAERS Safety Report 5833727-5 (Version None)
Quarter: 2008Q3

REPORT INFORMATION
  Report Type: 
  Country: None (occurrence: None)
  Receive Date: 20080804
  Receipt Date: 20080804
  Transmission Date: 20090109
  Serious: Yes (Hospitalization)
  Sender: FDA-Public Use
  Company Number: None

PATIENT
  Age: 32 Year
  Sex: Male
  Weight: 68.9467 kg

DRUGS (3)
  1. DOCETAXEL [Suspect]
     Indication: SARCOMA
     Dosage: 88 MG
     Route: 042
     Dates: start: 20080610
  2. GEMCITABINE [Suspect]
     Indication: SARCOMA
     Dosage: 2700 MG Q 2 WEEKS IV
     Route: 042
     Dates: start: 20080610
  3. BEVACIZUMAB [Suspect]
     Indication: SARCOMA
     Dosage: 5 MG/KG Q 2 WEEKS IV
     Route: 042
     Dates: start: 20080610

REACTIONS (2)
  - LOBAR PNEUMONIA [None]
  - SEPSIS [None]
